FAERS Safety Report 9364414 (Version 2)
Quarter: 2013Q3

REPORT INFORMATION
  Report Type: Spontaneous
  Country: US (occurrence: None)
  Receive Date: 20130619
  Receipt Date: 20130717
  Transmission Date: 20140515
  Serious: Yes (Hospitalization)
  Sender: FDA-Public Use
  Company Number: QSC-2013-0116

PATIENT
  Age: 41 Year
  Sex: Female
  Weight: 53.5 kg

DRUGS (10)
  1. H.P. ACTHAR GEL [Suspect]
     Indication: NEPHROTIC SYNDROME
     Dates: start: 201303, end: 20130422
  2. LISINOPRIL (LISINOPRIL) [Concomitant]
  3. AMLODIPINE (AMLODIPINE) [Concomitant]
  4. CALCIUM ACETATE (CALCIUM ACETATE) [Concomitant]
  5. CLONIDINE (CLONIDINE) [Concomitant]
  6. HYDRALAZINE (HYDRALAZINE) [Concomitant]
  7. LACTULOSE (LACTULOSE) [Concomitant]
  8. METOPROLOL (METOPROLOL) [Concomitant]
  9. FISH OIL (FISH OIL) [Concomitant]
  10. PANTOPRAZOLE (PANTOPRAZOLE) [Concomitant]

REACTIONS (17)
  - Colitis ischaemic [None]
  - Enterocolitis infectious [None]
  - Abdominal pain [None]
  - Rectal haemorrhage [None]
  - Iron deficiency anaemia [None]
  - Hypernatraemia [None]
  - Hypokalaemia [None]
  - Hypomagnesaemia [None]
  - Hypoalbuminaemia [None]
  - Anxiety [None]
  - Renal failure acute [None]
  - Blood pressure increased [None]
  - Diverticulitis [None]
  - Local swelling [None]
  - Malaise [None]
  - Asthenia [None]
  - Anaemia [None]
